FAERS Safety Report 11616216 (Version 4)
Quarter: 2016Q1

REPORT INFORMATION
  Report Type: Spontaneous
  Country: MX (occurrence: MX)
  Receive Date: 20151009
  Receipt Date: 20160309
  Transmission Date: 20160525
  Serious: Yes (Hospitalization, Other)
  Sender: FDA-Public Use
  Company Number: MX-EISAI MEDICAL RESEARCH-EC-2015-010984

PATIENT
  Age: 67 Year
  Sex: Female
  Weight: 84.5 kg

DRUGS (1)
  1. HALAVEN [Suspect]
     Active Substance: ERIBULIN MESYLATE
     Indication: SARCOMA UTERUS
     Route: 041
     Dates: start: 20150831, end: 20160104

REACTIONS (2)
  - Malignant neoplasm progression [Not Recovered/Not Resolved]
  - Proctitis [Recovered/Resolved]

NARRATIVE: CASE EVENT DATE: 20150913
